FAERS Safety Report 18202510 (Version 1)
Quarter: 2020Q3

REPORT INFORMATION
  Report Type: Spontaneous
  Country: US (occurrence: US)
  Receive Date: 20200827
  Receipt Date: 20200827
  Transmission Date: 20201103
  Serious: Yes (Hospitalization, Other)
  Sender: FDA-Public Use
  Company Number: US-MYLANLABS-2020M1072994

PATIENT
  Age: 58 Year
  Sex: Female

DRUGS (1)
  1. TRAMADOL. [Suspect]
     Active Substance: TRAMADOL
     Indication: PRODUCT USED FOR UNKNOWN INDICATION
     Dosage: UNK
     Route: 065
     Dates: start: 2016

REACTIONS (14)
  - Drug withdrawal syndrome [Unknown]
  - Disability [Not Recovered/Not Resolved]
  - Dysstasia [Unknown]
  - Coordination abnormal [Unknown]
  - Coma [Recovered/Resolved]
  - Insomnia [Unknown]
  - Fibromyalgia [Unknown]
  - Pain [Unknown]
  - Craniocerebral injury [Unknown]
  - Dependence [Unknown]
  - Memory impairment [Not Recovered/Not Resolved]
  - Speech disorder [Recovered/Resolved]
  - Seizure [Recovered/Resolved]
  - Neck injury [Unknown]

NARRATIVE: CASE EVENT DATE: 20160206
